FAERS Safety Report 19600506 (Version 1)
Quarter: 2021Q3

REPORT INFORMATION
  Report Type: Spontaneous
  Country: US (occurrence: US)
  Receive Date: 20210723
  Receipt Date: 20210723
  Transmission Date: 20211014
  Serious: No
  Sender: FDA-Public Use
  Company Number: US-TEVA-2021-US-1936243

PATIENT
  Sex: Male

DRUGS (1)
  1. TROSPIUM [Suspect]
     Active Substance: TROSPIUM
     Route: 065

REACTIONS (1)
  - Drug ineffective [Unknown]
